FAERS Safety Report 13490128 (Version 1)
Quarter: 2017Q2

REPORT INFORMATION
  Report Type: Spontaneous
  Country: US (occurrence: US)
  Receive Date: 20170427
  Receipt Date: 20170427
  Transmission Date: 20170830
  Serious: Yes (Other)
  Sender: FDA-Public Use
  Company Number: None

PATIENT

DRUGS (1)
  1. LASIX [Suspect]
     Active Substance: FUROSEMIDE

REACTIONS (6)
  - Loss of consciousness [None]
  - Hypersensitivity [None]
  - Skin exfoliation [None]
  - Fractured coccyx [None]
  - Bronchitis chronic [None]
  - Vulvovaginal pain [None]

NARRATIVE: CASE EVENT DATE: 20170219
